FAERS Safety Report 25064612 (Version 5)
Quarter: 2025Q4

REPORT INFORMATION
  Report Type: Report from Study
  Country: US (occurrence: None)
  Receive Date: 20250311
  Receipt Date: 20251128
  Transmission Date: 20260118
  Serious: Yes (Other)
  Sender: UCB
  Company Number: US-UCBSA-2025013662

PATIENT
  Age: 15 Year
  Weight: 34.9 kg

DRUGS (3)
  1. FENFLURAMINE HYDROCHLORIDE [Suspect]
     Active Substance: FENFLURAMINE HYDROCHLORIDE
     Indication: Seizure
     Dosage: 5 MILLILITER, 2X/DAY (BID)
  2. FENFLURAMINE HYDROCHLORIDE [Suspect]
     Active Substance: FENFLURAMINE HYDROCHLORIDE
     Indication: Lennox-Gastaut syndrome
     Dosage: 22 MILLIGRAM PER DAY
  3. FENFLURAMINE HYDROCHLORIDE [Suspect]
     Active Substance: FENFLURAMINE HYDROCHLORIDE
     Dosage: 22 MILLIGRAM PER DAY

REACTIONS (1)
  - Tricuspid valve incompetence [Not Recovered/Not Resolved]
